FAERS Safety Report 6608234-2 (Version None)
Quarter: 2010Q1

REPORT INFORMATION
  Report Type: 
  Country: None (occurrence: None)
  Receive Date: 20100301
  Receipt Date: 20100219
  Transmission Date: 20100710
  Serious: Yes (Hospitalization, Other)
  Sender: FDA-Public Use
  Company Number: PL-ROCHE-683472

PATIENT
  Sex: Female
  Weight: 88.6 kg

DRUGS (9)
  1. MIRCERA [Suspect]
     Dosage: DOSE REPORTED: 100 PER MONTH FORM : PRE-FILLED SYRINGE
     Route: 058
     Dates: start: 20091007
  2. NEORECORMON [Suspect]
     Dosage: DOSE REPORTED: 4000 U PER WEEK FORM : PRE-FILLED SYRINGE
     Route: 058
     Dates: start: 20080301, end: 20090219
  3. NEORECORMON [Suspect]
     Dosage: DOSE REPORTED: 4000/8000
     Route: 058
     Dates: end: 20091007
  4. EPREX [Suspect]
     Dosage: DOSE: 4000 U PER WEEK FORM : PRE-FILLED SYRINGE
     Route: 058
     Dates: start: 20090219, end: 20091007
  5. GENSULIN R [Concomitant]
     Indication: DIABETES MELLITUS
     Dosage: DOSE REPORTED: 16 U EVERY DAY
     Route: 058
     Dates: start: 20091101
  6. AREPLEX [Concomitant]
     Indication: STENT PLACEMENT
     Route: 048
     Dates: start: 20100101
  7. EFFOX [Concomitant]
     Indication: CORONARY ARTERY DISEASE
     Dosage: DRUG NAME: EFFOX LONG 50
     Route: 048
     Dates: start: 20080101
  8. METOCARD [Concomitant]
     Indication: CORONARY ARTERY DISEASE
     Dosage: DRUG NAME: METOCARD 2 X 50
     Route: 048
     Dates: start: 20080101
  9. POLOCARD [Concomitant]
     Indication: CORONARY ARTERY DISEASE
     Dosage: DRUG NAME: POLOCARD 150
     Route: 048
     Dates: start: 20100101

REACTIONS (3)
  - APLASIA PURE RED CELL [None]
  - DRUG INEFFECTIVE [None]
  - HAEMOGLOBIN DECREASED [None]
